FAERS Safety Report 9684301 (Version 1)
Quarter: 2013Q4

REPORT INFORMATION
  Report Type: Spontaneous
  Country: DE (occurrence: DE)
  Receive Date: 20131112
  Receipt Date: 20131112
  Transmission Date: 20140711
  Serious: Yes (Hospitalization)
  Sender: FDA-Public Use
  Company Number: DE-ASTRAZENECA-2013SE81358

PATIENT
  Age: 43 Year
  Sex: Female

DRUGS (3)
  1. SEROQUEL [Suspect]
     Route: 048
     Dates: start: 20121123, end: 20121207
  2. TREVILOR [Suspect]
     Route: 048
     Dates: start: 20121113
  3. L-THYROXIN [Concomitant]
     Route: 048
     Dates: start: 2011

REACTIONS (2)
  - Potentiating drug interaction [Recovered/Resolved]
  - Electrocardiogram QT prolonged [Recovered/Resolved]
